FAERS Safety Report 5382298-9 (Version None)
Quarter: 2007Q3

REPORT INFORMATION
  Report Type: 
  Country: None (occurrence: None)
  Receive Date: 20070705
  Receipt Date: 20070621
  Transmission Date: 20080115
  Serious: Yes (Other)
  Sender: FDA-Public Use
  Company Number: 2007JP001904

PATIENT
  Age: 57 Year
  Sex: Female
  Weight: 48.1 kg

DRUGS (4)
  1. FUNGUARD(MICAFUNGIN) INJECTION [Suspect]
     Indication: FUNGAL INFECTION
     Dosage: 150 MG, UNKNOWN/D, IV DRIP
     Route: 041
     Dates: start: 20070425, end: 20070425
  2. CRAVIT(LEVOFLOXACIN) TABLET [Suspect]
     Indication: PYELONEPHRITIS
     Dosage: 100 MG, UID/QD, ORAL
     Route: 048
     Dates: start: 20070421, end: 20070424
  3. SOLU-MEDROL [Suspect]
     Indication: ANAPHYLACTIC SHOCK
     Dosage: 500 MG, UNKNOWN/D, IV DRIP
     Route: 041
     Dates: start: 20070425, end: 20070425
  4. NORVASC (AMLODIPINE BESILATE) PER ORAL NOS [Concomitant]

REACTIONS (13)
  - ANAPHYLACTIC SHOCK [None]
  - BACK PAIN [None]
  - BLOOD PRESSURE DIASTOLIC DECREASED [None]
  - BLOOD PRESSURE INCREASED [None]
  - CHILLS [None]
  - DIALYSIS [None]
  - DIZZINESS [None]
  - ELECTROCARDIOGRAM QT PROLONGED [None]
  - NAUSEA [None]
  - OXYGEN SATURATION DECREASED [None]
  - PHOTOPSIA [None]
  - SINUS BRADYCARDIA [None]
  - VENTRICULAR TACHYCARDIA [None]
